FAERS Safety Report 5600769-4 (Version None)
Quarter: 2008Q1

REPORT INFORMATION
  Report Type: 
  Country: None (occurrence: None)
  Receive Date: 20080111
  Receipt Date: 20061128
  Transmission Date: 20080703
  Serious: Yes (Hospitalization, Other)
  Sender: FDA-Public Use
  Company Number: HQWYE265320JUL04

PATIENT
  Age: 53 Year
  Sex: Female
  Weight: 64.47 kg

DRUGS (5)
  1. PREMPRO (CONJUGATED ESTROGENS/MEDROXYPROGESTRONE ACETATE, TABLET, UNSP [Suspect]
  2. ESTRACE [Suspect]
  3. MEDROXYPROGESTERONE ACETATE [Suspect]
  4. PREMARIN [Suspect]
  5. PROVERA [Suspect]

REACTIONS (1)
  - BREAST CANCER [None]
